FAERS Safety Report 4330586-7 (Version None)
Quarter: 2004Q2

REPORT INFORMATION
  Report Type: 
  Country: None (occurrence: None)
  Receive Date: 20040402
  Receipt Date: 20040114
  Transmission Date: 20050107
  Serious: Yes (Other)
  Sender: FDA-Public Use
  Company Number: US-ROCHE-356260

PATIENT
  Sex: Female

DRUGS (2)
  1. PEGASYS [Suspect]
     Indication: DRUG USE FOR UNKNOWN INDICATION
     Route: 058
     Dates: start: 20030817
  2. COPEGUS [Suspect]
     Indication: DRUG USE FOR UNKNOWN INDICATION
     Route: 048
     Dates: start: 20030817

REACTIONS (5)
  - HAEMATEMESIS [None]
  - HYPERSOMNIA [None]
  - INFLUENZA LIKE ILLNESS [None]
  - INSOMNIA [None]
  - LETHARGY [None]
